FAERS Safety Report 5912394-6 (Version None)
Quarter: 2008Q4

REPORT INFORMATION
  Report Type: 
  Country: None (occurrence: None)
  Receive Date: 20081007
  Receipt Date: 20081007
  Transmission Date: 20090506
  Serious: Yes (Hospitalization)
  Sender: FDA-Public Use
  Company Number: None

PATIENT
  Age: 59 Year
  Sex: Male
  Weight: 118.5 kg

DRUGS (1)
  1. ENOXAPARIN SODIUM [Suspect]
     Dosage: 140 MG BID SQ
     Route: 058
     Dates: start: 20080920, end: 20080925

REACTIONS (4)
  - HAEMATOMA [None]
  - HAEMOGLOBIN DECREASED [None]
  - HAEMORRHAGE [None]
  - WEIGHT DECREASED [None]
